FAERS Safety Report 9538475 (Version 1)
Quarter: 2013Q2

REPORT INFORMATION
  Report Type: Spontaneous
  Country: US (occurrence: None)
  Receive Date: 20130510
  Receipt Date: 20130510
  Transmission Date: 20140414
  Serious: No
  Sender: FDA-Public Use
  Company Number: US-011016

PATIENT
  Age: 62 Year
  Sex: Female

DRUGS (7)
  1. PICO-SALAX (NOT SPECIFIED) [Suspect]
     Indication: COLONOSCOPY
     Dosage: (TOOK TWO PACKETS AND WATER AS RECOMMENDED)  TO THERAPY (TO NOT CONTINUING
  2. BENADRYL [Concomitant]
  3. SINGULAIR [Concomitant]
  4. NATURE MADE VITAMIN C [Concomitant]
  5. VITAMINE  E [Concomitant]
  6. CALCIUM [Concomitant]
  7. ASA [Concomitant]

REACTIONS (1)
  - Drug ineffective [None]
